FAERS Safety Report 10076676 (Version 4)
Quarter: 2014Q2

REPORT INFORMATION
  Report Type: Spontaneous
  Country: TR (occurrence: TR)
  Receive Date: 20140414
  Receipt Date: 20140606
  Transmission Date: 20141212
  Serious: Yes (Hospitalization, Other)
  Sender: FDA-Public Use
  Company Number: TR-AMGEN-TURSP2014026252

PATIENT
  Age: 47 Year
  Sex: Male
  Weight: 70 kg

DRUGS (8)
  1. ENBREL [Suspect]
     Indication: RHEUMATOID ARTHRITIS
     Dosage: 50 MG, QWK
     Route: 058
     Dates: start: 20131230
  2. LEFLUNOMIDE [Concomitant]
     Dosage: 10 MG, UNK
     Route: 048
  3. LEFLUNOMIDE [Concomitant]
     Dosage: 20 MG, 1X/DAY
     Route: 048
  4. INSULIN [Concomitant]
     Dosage: UNK
     Route: 058
  5. NOVORAPID [Concomitant]
     Dosage: 20 IU, 3X/DAY, 24 IU 1X/DAY
  6. LEVEMIR [Concomitant]
     Dosage: 24 IU, 1X/DAY
  7. AMLODIPINE [Concomitant]
     Dosage: 10 MG 1X1 WHILE
  8. LIPANTHYL [Concomitant]
     Dosage: 267 MG, QD

REACTIONS (3)
  - Streptococcus test positive [Unknown]
  - Infection [Recovered/Resolved]
  - Pneumonia [Unknown]
